FAERS Safety Report 4604667-4 (Version None)
Quarter: 2005Q2

REPORT INFORMATION
  Report Type: 
  Country: None (occurrence: None)
  Receive Date: 20050223
  Receipt Date: 20041206
  Transmission Date: 20051028
  Serious: No
  Sender: FDA-Public Use
  Company Number: PHEH2004US13008

PATIENT
  Age: 54 Year
  Sex: Female

DRUGS (4)
  1. ZELNORM [Suspect]
     Indication: IRRITABLE BOWEL SYNDROME
     Dosage: 6 MG, BID, ORAL
     Route: 048
     Dates: start: 20041101, end: 20041201
  2. PAMELOR (NORTRIPTYLINE HYDROCHLORIDE) CAPSULE [Concomitant]
  3. KLONOPIN [Concomitant]
  4. ZOLOFT [Concomitant]

REACTIONS (3)
  - HYPOAESTHESIA [None]
  - PAIN [None]
  - PARAESTHESIA [None]
